FAERS Safety Report 10302044 (Version 1)
Quarter: 2014Q3

REPORT INFORMATION
  Report Type: Spontaneous
  Country: US (occurrence: None)
  Receive Date: 20140709
  Receipt Date: 20140709
  Transmission Date: 20150326
  Serious: Yes (Hospitalization)
  Sender: FDA-Public Use
  Company Number: None

PATIENT
  Age: 85 Year
  Sex: Female
  Weight: 55.3 kg

DRUGS (1)
  1. HERCEPTIN [Suspect]
     Active Substance: TRASTUZUMAB
     Indication: UTERINE CANCER
     Dosage: 342MG Q 3 WEEKS IV
     Route: 042
     Dates: start: 20130917, end: 20140529

REACTIONS (4)
  - Pleural effusion [None]
  - Uterine cancer [None]
  - Atelectasis [None]
  - Malignant neoplasm progression [None]

NARRATIVE: CASE EVENT DATE: 20140602
